FAERS Safety Report 8212617-7 (Version None)
Quarter: 2012Q1

REPORT INFORMATION
  Report Type: 
  Country: None (occurrence: None)
  Receive Date: 20120315
  Receipt Date: 20120309
  Transmission Date: 20120608
  Serious: Yes (Other)
  Sender: FDA-Public Use
  Company Number: US-TEVA-327410USA

PATIENT
  Sex: Male
  Weight: 81.72 kg

DRUGS (2)
  1. TIOTROPIUM BROMIDE [Concomitant]
  2. PROAIR HFA [Suspect]
     Indication: CHRONIC OBSTRUCTIVE PULMONARY DISEASE
     Route: 055
     Dates: start: 20101001

REACTIONS (1)
  - SWELLING FACE [None]
